FAERS Safety Report 4570072-2 (Version None)
Quarter: 2005Q1

REPORT INFORMATION
  Report Type: 
  Country: None (occurrence: None)
  Receive Date: 20050125
  Receipt Date: 20050125
  Transmission Date: 20050727
  Serious: Yes (Other)
  Sender: FDA-Public Use
  Company Number: None

PATIENT
  Age: 54 Year
  Sex: Female
  Weight: 103.4201 kg

DRUGS (11)
  1. OXACILLIN [Suspect]
     Indication: BACTERAEMIA
     Dosage: 2 GM Q6H IV
     Route: 042
     Dates: start: 20041210, end: 20050103
  2. OXACILLIN [Suspect]
     Indication: LIVER ABSCESS
     Dosage: 2 GM Q6H IV
     Route: 042
     Dates: start: 20041210, end: 20050103
  3. FUROSEMIDE [Concomitant]
  4. K-DUR 10 [Concomitant]
  5. GLUCOTROL XL [Concomitant]
  6. HUMULIN R [Concomitant]
  7. PROTONIX [Concomitant]
  8. AMBIEN [Concomitant]
  9. ACETAMINOPHEN [Concomitant]
  10. ZOFRAN [Concomitant]
  11. VILADIN [Concomitant]

REACTIONS (2)
  - DRY SKIN [None]
  - SKIN EXFOLIATION [None]
